FAERS Safety Report 6355168-7 (Version None)
Quarter: 2009Q3

REPORT INFORMATION
  Report Type: 
  Country: None (occurrence: None)
  Receive Date: 20090914
  Receipt Date: 20090908
  Transmission Date: 20100115
  Serious: Yes (Hospitalization)
  Sender: FDA-Public Use
  Company Number: JP-B.I. PHARMACEUTICALS,INC./RIDGEFIELD-2009-BP-07062YA

PATIENT
  Age: 55 Year
  Sex: Male

DRUGS (9)
  1. HARNAL (TAMSULOSIN) ORODISPERSABLE CR [Suspect]
     Route: 048
  2. MYSLEE (ZOLPIDEM) [Suspect]
     Route: 048
  3. MEILAX (ETHYL LOFLAZEPATE) [Suspect]
     Route: 048
  4. VFEND [Suspect]
     Route: 048
  5. GASCON (DIMETICONE) [Suspect]
     Route: 048
  6. AMOBAN (ZOPICLONE) [Suspect]
     Route: 048
  7. SP TROCHE (DEQUALINIUM CHLORIDE) [Suspect]
     Route: 048
  8. DEPAS (ETIZOLAM) [Suspect]
     Route: 048
  9. SENNOSIDE (SENNOSIDE A+B) [Suspect]
     Route: 048

REACTIONS (1)
  - HEPATIC FUNCTION ABNORMAL [None]
